FAERS Safety Report 7318931-1 (Version None)
Quarter: 2011Q1

REPORT INFORMATION
  Report Type: 
  Country: None (occurrence: None)
  Receive Date: 20110228
  Receipt Date: 20110215
  Transmission Date: 20110831
  Serious: Yes (Hospitalization, Disabling, Congenital Anomaly)
  Sender: FDA-Public Use
  Company Number: GB-ELI_LILLY_AND_COMPANY-GB201102003844

PATIENT

DRUGS (5)
  1. VENTOLIN [Concomitant]
     Indication: ASTHMA
     Dosage: UNK, AS NEEDED
     Route: 064
  2. VENTOLIN [Concomitant]
     Indication: ASTHMA
     Dosage: UNK, AS NEEDED
     Route: 064
  3. FLUOXETINE [Suspect]
     Indication: DEPRESSION
     Dosage: 20 MG, DAILY (1/D)
     Route: 064
     Dates: start: 20100413, end: 20100617
  4. CLENIL [Concomitant]
     Indication: ASTHMA
     Dosage: UNK, AS NEEDED
  5. FEXOFENADINE [Concomitant]
     Indication: SEASONAL ALLERGY
     Dosage: 180 MG, UNK
     Route: 064

REACTIONS (2)
  - MULTIPLE CONGENITAL ABNORMALITIES [None]
  - DRUG EXPOSURE DURING PREGNANCY [None]
